FAERS Safety Report 7299621-0 (Version None)
Quarter: 2011Q1

REPORT INFORMATION
  Report Type: 
  Country: None (occurrence: None)
  Receive Date: 20110208
  Receipt Date: 20110124
  Transmission Date: 20110831
  Serious: No
  Sender: FDA-Public Use
  Company Number: 022566

PATIENT
  Sex: Male
  Weight: 90.7 kg

DRUGS (16)
  1. ALTACE [Concomitant]
  2. COUMADIN [Concomitant]
  3. NORVASC [Concomitant]
  4. LIPITOR [Concomitant]
  5. TOPROL-XL [Concomitant]
  6. CALCIUM [Suspect]
     Dosage: (500 MG QD ORAL)
     Route: 048
     Dates: start: 20101116, end: 20101118
  7. CADUET [Concomitant]
  8. WARFARIN [Concomitant]
  9. FLOMAX [Concomitant]
  10. CALCIUM [Concomitant]
  11. VITAMIN D [Suspect]
     Indication: VITAMIN D DEFICIENCY
     Dosage: (50000 IU FOR 6 WEEKS ORAL)
     Route: 048
     Dates: start: 20101115
  12. VITAMIN B12 [Suspect]
     Dosage: (500000 IU QD ORAL)
     Route: 048
     Dates: start: 20101116, end: 20101118
  13. KEPPRA [Suspect]
     Indication: CONVULSION
     Dosage: (750 MG BID ORAL), (100 MG BID, 1000 MG IN THE MORNING AND 1000 MG AT NIGHT ORAL), (1500 MG BID ORAL
     Route: 048
     Dates: start: 20101119, end: 20110117
  14. KEPPRA [Suspect]
     Indication: CONVULSION
     Dosage: (750 MG BID ORAL), (100 MG BID, 1000 MG IN THE MORNING AND 1000 MG AT NIGHT ORAL), (1500 MG BID ORAL
     Route: 048
     Dates: start: 20090901, end: 20101118
  15. KEPPRA [Suspect]
     Indication: CONVULSION
     Dosage: (750 MG BID ORAL), (100 MG BID, 1000 MG IN THE MORNING AND 1000 MG AT NIGHT ORAL), (1500 MG BID ORAL
     Route: 048
     Dates: start: 20100117
  16. VITAMIN B12 /00056201/ [Concomitant]

REACTIONS (3)
  - CONVULSION [None]
  - INAPPROPRIATE SCHEDULE OF DRUG ADMINISTRATION [None]
  - LIP INJURY [None]
